FAERS Safety Report 14846814 (Version 5)
Quarter: 2021Q1

REPORT INFORMATION
  Report Type: Spontaneous
  Country: US (occurrence: US)
  Receive Date: 20180504
  Receipt Date: 20210203
  Transmission Date: 20210419
  Serious: Yes (Other)
  Sender: FDA-Public Use
  Company Number: US-PFIZER INC-2017424256

PATIENT
  Age: 73 Year
  Sex: Female

DRUGS (2)
  1. XELJANZ XR [Suspect]
     Active Substance: TOFACITINIB CITRATE
     Dosage: 11 MG
     Dates: start: 202009
  2. XELJANZ XR [Suspect]
     Active Substance: TOFACITINIB CITRATE
     Indication: RHEUMATOID ARTHRITIS
     Dosage: 11 MG, 1X/DAY
     Route: 048

REACTIONS (9)
  - Illness [Unknown]
  - Arthralgia [Unknown]
  - Accident [Unknown]
  - Joint injury [Unknown]
  - Condition aggravated [Unknown]
  - Asthenia [Unknown]
  - Cellulitis [Unknown]
  - Finger deformity [Unknown]
  - Bursitis [Unknown]

NARRATIVE: CASE EVENT DATE: 201908
